FAERS Safety Report 9469431 (Version 1)
Quarter: 2013Q3

REPORT INFORMATION
  Report Type: Spontaneous
  Country: US (occurrence: US)
  Receive Date: 20130822
  Receipt Date: 20130822
  Transmission Date: 20140515
  Serious: Yes (Other)
  Sender: FDA-Public Use
  Company Number: US-AMGEN-USASP2013057727

PATIENT
  Age: 2 Year
  Sex: Female

DRUGS (2)
  1. ENBREL [Suspect]
     Dosage: 9 MG, QWK
     Route: 058
  2. NAPROXEN [Concomitant]
     Dosage: 375 MG, UNK

REACTIONS (1)
  - Urinary tract infection [Recovered/Resolved]
